FAERS Safety Report 10489797 (Version 2)
Quarter: 2014Q4

REPORT INFORMATION
  Report Type: Spontaneous
  Country: JP (occurrence: JP)
  Receive Date: 20141002
  Receipt Date: 20141002
  Transmission Date: 20150528
  Serious: Yes (Death, Life-Threatening, Hospitalization)
  Sender: FDA-Public Use
  Company Number: JP-PFIZER INC-2014181630

PATIENT
  Age: 53 Year
  Sex: Male

DRUGS (9)
  1. ACARDI [Concomitant]
     Indication: CARDIAC FAILURE
     Dosage: UNK
     Dates: start: 20060408, end: 20140513
  2. CETAPRIL [Concomitant]
     Indication: CARDIAC FAILURE
     Dosage: UNK
     Dates: start: 20070713, end: 20140513
  3. DIART [Concomitant]
     Active Substance: AZOSEMIDE
     Indication: CARDIAC FAILURE
     Dosage: UNK
     Dates: start: 20070629, end: 20140513
  4. ZYLORIC [Concomitant]
     Active Substance: ALLOPURINOL
     Indication: HYPERURICAEMIA
     Dosage: UNK
     Dates: end: 20140513
  5. ANCARON [Suspect]
     Active Substance: AMIODARONE HYDROCHLORIDE
     Indication: VENTRICULAR TACHYCARDIA
  6. ARTIST [Concomitant]
     Active Substance: CARVEDILOL
     Indication: CARDIAC FAILURE
     Dosage: UNK
     Dates: start: 20040207, end: 20140513
  7. NEUQUINON [Concomitant]
     Active Substance: UBIDECARENONE
     Indication: CARDIAC FAILURE
     Dosage: UNK
     Dates: end: 20140513
  8. ANCARON [Suspect]
     Active Substance: AMIODARONE HYDROCHLORIDE
     Indication: ARRHYTHMIA
     Dosage: 100 MG, 2X/DAY
     Route: 048
     Dates: start: 20091009, end: 20140306
  9. LANIRAPID [Concomitant]
     Active Substance: METILDIGOXIN
     Indication: CARDIAC FAILURE
     Dosage: UNK
     Dates: start: 20040209, end: 20140513

REACTIONS (4)
  - Cholelithiasis [Unknown]
  - Hepatic function abnormal [Fatal]
  - Multi-organ failure [Fatal]
  - Cholecystitis [Unknown]

NARRATIVE: CASE EVENT DATE: 20110712
